FAERS Safety Report 9587481 (Version 2)
Quarter: 2013Q4

REPORT INFORMATION
  Report Type: Spontaneous
  Country: US (occurrence: US)
  Receive Date: 20131003
  Receipt Date: 20131011
  Transmission Date: 20140711
  Serious: No
  Sender: FDA-Public Use
  Company Number: US-009507513-1309USA013506

PATIENT
  Sex: Female
  Weight: 48.73 kg

DRUGS (1)
  1. IMPLANON [Suspect]
     Indication: CONTRACEPTION
     Dosage: UNK
     Route: 059
     Dates: start: 20120710

REACTIONS (5)
  - Vomiting [Unknown]
  - Polymenorrhoea [Unknown]
  - Breast pain [Unknown]
  - Breast discomfort [Unknown]
  - Device dislocation [Unknown]
